FAERS Safety Report 4517830-8 (Version None)
Quarter: 2004Q4

REPORT INFORMATION
  Report Type: 
  Country: None (occurrence: None)
  Receive Date: 20041203
  Receipt Date: 20030829
  Transmission Date: 20050328
  Serious: Yes (Death)
  Sender: FDA-Public Use
  Company Number: US-MERCK-0309USA00024

PATIENT
  Age: 41 Year
  Sex: Male
  Weight: 99 kg

DRUGS (10)
  1. VIOXX [Suspect]
     Indication: LIGAMENT INJURY
     Route: 048
     Dates: start: 20000814
  2. VIOXX [Suspect]
     Route: 048
     Dates: start: 20010810
  3. VIOXX [Suspect]
     Indication: TENDONITIS
     Route: 048
     Dates: start: 20000814
  4. VIOXX [Suspect]
     Route: 048
     Dates: start: 20010810
  5. ATACAND [Concomitant]
     Route: 065
  6. ZIAC [Concomitant]
     Route: 065
  7. ZYRTEC [Concomitant]
     Route: 065
  8. LIPITOR [Concomitant]
     Route: 065
  9. ASPIRIN [Concomitant]
     Route: 065
  10. TUMS [Concomitant]
     Route: 065

REACTIONS (21)
  - BLOOD TRIGLYCERIDES INCREASED [None]
  - CARDIAC ARREST [None]
  - CARDIO-RESPIRATORY ARREST [None]
  - CYANOSIS [None]
  - DILATATION ATRIAL [None]
  - EAR INFECTION [None]
  - FACE OEDEMA [None]
  - FATIGUE [None]
  - GASTROOESOPHAGEAL REFLUX DISEASE [None]
  - HYPERCHOLESTEROLAEMIA [None]
  - MITRAL VALVE INCOMPETENCE [None]
  - PULMONARY HYPERTENSION [None]
  - ROTATOR CUFF SYNDROME [None]
  - SLEEP APNOEA SYNDROME [None]
  - SOMNOLENCE [None]
  - SUDDEN DEATH [None]
  - TENDONITIS [None]
  - TRICUSPID VALVE INCOMPETENCE [None]
  - VENTRICULAR HYPERTROPHY [None]
  - VOMITING [None]
  - WEIGHT INCREASED [None]
